FAERS Safety Report 7641117-8 (Version None)
Quarter: 2011Q3

REPORT INFORMATION
  Report Type: 
  Country: None (occurrence: None)
  Receive Date: 20110728
  Receipt Date: 20110721
  Transmission Date: 20111222
  Serious: Yes (Other)
  Sender: FDA-Public Use
  Company Number: BR-SANOFI-AVENTIS-2011SA046967

PATIENT
  Age: 59 Year
  Sex: Male
  Weight: 95 kg

DRUGS (3)
  1. NALIDIXIC ACID [Suspect]
     Indication: PROSTATITIS
     Route: 048
     Dates: start: 20110101
  2. NALIDIXIC ACID [Suspect]
     Route: 048
     Dates: start: 20110628, end: 20110705
  3. NALIDIXIC ACID [Suspect]
     Route: 048

REACTIONS (5)
  - TENDON RUPTURE [None]
  - TENDON DISORDER [None]
  - DRUG INEFFECTIVE [None]
  - PRODUCT QUALITY ISSUE [None]
  - PAIN [None]
